FAERS Safety Report 14392558 (Version 1)
Quarter: 2018Q1

REPORT INFORMATION
  Report Type: Spontaneous
  Country: US (occurrence: US)
  Receive Date: 20180116
  Receipt Date: 20180116
  Transmission Date: 20180509
  Serious: Yes (Death, Life-Threatening, Hospitalization, Other)
  Sender: FDA-Public Use
  Company Number: US-JUBILANT CADISTA PHARMACEUTICALS-2018JUB00001

PATIENT
  Age: 74 Year
  Sex: Female

DRUGS (1)
  1. PREDNISONE. [Suspect]
     Active Substance: PREDNISONE
     Indication: TEMPORAL ARTERITIS
     Dosage: 80 MG, 1X/DAY
     Route: 065

REACTIONS (13)
  - Immunosuppression [Fatal]
  - Pneumonia [Unknown]
  - Enteritis [Unknown]
  - Suicidal ideation [Unknown]
  - Malignant neoplasm of spinal cord [Fatal]
  - Coronary artery disease [Unknown]
  - Septic shock [Unknown]
  - Abnormal behaviour [Unknown]
  - Pneumothorax [Unknown]
  - Urinary tract infection [Unknown]
  - Lung adenocarcinoma [Unknown]
  - Adenocarcinoma of colon [Fatal]
  - Oedema [Unknown]
